FAERS Safety Report 9970702 (Version 1)
Quarter: 2014Q1

REPORT INFORMATION
  Report Type: Spontaneous
  Country: US (occurrence: None)
  Receive Date: 20140127
  Receipt Date: 20140127
  Transmission Date: 20141002
  Serious: Yes (Other)
  Sender: FDA-Public Use
  Company Number: 1283429

PATIENT
  Age: 64 Year
  Sex: Female

DRUGS (5)
  1. RITUXIMAB [Suspect]
     Indication: MANTLE CELL LYMPHOMA
  2. CYCLOPHOSPHAMIDE [Suspect]
     Indication: MANTLE CELL LYMPHOMA
  3. VINCRISTINE(VINCRISTINE)(VINCRISTINE) [Suspect]
     Indication: MANTLE CELL LYMPHOMA
  4. ADRIAMYCIN [Suspect]
     Indication: MANTLE CELL LYMPHOMA
  5. DEXAMETHASONE [Suspect]
     Indication: MANTLE CELL LYMPHOMA

REACTIONS (4)
  - Thrombocytopenia [None]
  - Haemoglobin decreased [None]
  - Infusion related reaction [None]
  - White blood cell count decreased [None]
